FAERS Safety Report 16050868 (Version 2)
Quarter: 2019Q2

REPORT INFORMATION
  Report Type: Spontaneous
  Country: US (occurrence: US)
  Receive Date: 20190308
  Receipt Date: 20190508
  Transmission Date: 20190711
  Serious: No
  Sender: FDA-Public Use
  Company Number: US-PFIZER INC-2019096137

PATIENT
  Age: 44 Year
  Sex: Female
  Weight: 76.3 kg

DRUGS (1)
  1. IRINOTECAN HCL [Suspect]
     Active Substance: IRINOTECAN HYDROCHLORIDE
     Indication: PANCREATIC CARCINOMA
     Dosage: 347 MG, UNK
     Dates: start: 20190212

REACTIONS (4)
  - Swollen tongue [Unknown]
  - Hypertension [Unknown]
  - Flushing [Unknown]
  - Dysarthria [Unknown]

NARRATIVE: CASE EVENT DATE: 20190212
